FAERS Safety Report 7142523-0 (Version None)
Quarter: 2010Q4

REPORT INFORMATION
  Report Type: 
  Country: None (occurrence: None)
  Receive Date: 20101112
  Receipt Date: 20100728
  Transmission Date: 20110411
  Serious: No
  Sender: FDA-Public Use
  Company Number: 1000015405

PATIENT
  Age: 54 Year
  Sex: Female

DRUGS (5)
  1. SAVELLA [Suspect]
     Indication: FIBROMYALGIA
     Dosage: 12.5 MG (12.5 MG, 1 IN 1 D),ORAL; 25 MG (12.5 MG, 2 IN 1),ORAL
     Route: 048
     Dates: start: 20100715, end: 20100715
  2. SAVELLA [Suspect]
     Indication: FIBROMYALGIA
     Dosage: 12.5 MG (12.5 MG, 1 IN 1 D),ORAL; 25 MG (12.5 MG, 2 IN 1),ORAL
     Route: 048
     Dates: start: 20100716, end: 20100717
  3. SAVELLA [Suspect]
     Indication: FIBROMYALGIA
     Dosage: 50 MG (25 MG, 2 IN 1 D), ORAL
     Route: 048
     Dates: start: 20100718, end: 20100721
  4. MINOCIN [Concomitant]
  5. OPANA [Concomitant]

REACTIONS (1)
  - TINNITUS [None]
